FAERS Safety Report 8140777-5 (Version None)
Quarter: 2012Q1

REPORT INFORMATION
  Report Type: 
  Country: None (occurrence: None)
  Receive Date: 20120216
  Receipt Date: 20120209
  Transmission Date: 20120608
  Serious: Yes (Life-Threatening, Other)
  Sender: FDA-Public Use
  Company Number: US-BRISTOL-MYERS SQUIBB COMPANY-16393191

PATIENT
  Age: 19 Year
  Sex: Male

DRUGS (3)
  1. ABILIFY [Suspect]
     Indication: DEPRESSION
     Dosage: A FEW YEARS AGO
  2. ABILIFY [Suspect]
     Indication: ATTENTION DEFICIT/HYPERACTIVITY DISORDER
     Dosage: A FEW YEARS AGO
  3. ABILIFY [Suspect]
     Indication: ASPERGER'S DISORDER
     Dosage: A FEW YEARS AGO

REACTIONS (3)
  - SUICIDAL IDEATION [None]
  - AGITATION [None]
  - AGGRESSION [None]
